FAERS Safety Report 7576399-4 (Version None)
Quarter: 2011Q2

REPORT INFORMATION
  Report Type: 
  Country: None (occurrence: None)
  Receive Date: 20110628
  Receipt Date: 20110614
  Transmission Date: 20111010
  Serious: Yes (Hospitalization, Other)
  Sender: FDA-Public Use
  Company Number: US-BAYER-200940986NA

PATIENT
  Age: 58 Year
  Sex: Male
  Weight: 90 kg

DRUGS (41)
  1. TRASYLOL [Suspect]
     Indication: AORTIC DISSECTION RUPTURE
     Dosage: 50 ML EVERY 30 MINUTES (19 DOSES)
     Route: 042
     Dates: start: 20070308, end: 20070309
  2. LEVOPHED [Concomitant]
     Dosage: UNK
     Route: 042
     Dates: start: 20070308
  3. EPINEPHRINE [Concomitant]
     Dosage: UNK
     Route: 042
     Dates: start: 20070308
  4. VERSED [Concomitant]
     Dosage: UNK
     Route: 042
     Dates: start: 20070308
  5. ZAROXOLYN [Concomitant]
  6. DIGOXIN [Concomitant]
     Dosage: 0.125 MG, QD
     Route: 048
  7. ISOFLURANE [Concomitant]
     Dosage: UNK
     Dates: start: 20070308
  8. AMIODARONE HCL [Concomitant]
     Dosage: UNK
     Route: 042
     Dates: start: 20070308
  9. NEXIUM [Concomitant]
     Dosage: 40 MG, BID
     Route: 048
  10. ACETYLSALICYLIC ACID SRT [Concomitant]
     Dosage: 325 MG, QD
     Route: 048
  11. XANAX [Concomitant]
     Dosage: 0.25 MG, TID AS NEEDED
     Route: 048
  12. CARDIOVASCULAR SYSTEM DRUGS [Concomitant]
     Dosage: UNK
     Route: 042
     Dates: start: 20070308
  13. PLATELETS [Concomitant]
     Dosage: 2 U, UNK
     Dates: start: 20070308
  14. LIPITOR [Concomitant]
     Dosage: 40 MG, HS
  15. TRASYLOL [Suspect]
     Indication: VASCULAR GRAFT
     Dosage: 1 ML, TEST DOSE
     Dates: start: 20070308
  16. FENTANYL [Concomitant]
     Dosage: UNK
     Route: 042
     Dates: start: 20070308
  17. DIOVAN [Concomitant]
     Dosage: 320 MG, QD
  18. FOLATE SODIUM [Concomitant]
     Dosage: 5 MG, QD
     Route: 048
  19. TRASYLOL [Suspect]
     Indication: ARTERIAL BYPASS OPERATION
  20. MILRINONE [Concomitant]
     Dosage: UNK
     Route: 042
     Dates: start: 20070308
  21. FENOLDOPAM [Concomitant]
     Dosage: UNK
     Route: 042
     Dates: start: 20070308
  22. TRICOR [Concomitant]
     Dosage: 175 MG, QD
  23. COREG [Concomitant]
     Dosage: 37.5 MG, BID
  24. RED BLOOD CELLS, CONCENTRATED [Concomitant]
     Dosage: 7 U, UNK
     Dates: start: 20070308
  25. EFFEXOR XR [Concomitant]
  26. COZAAR [Concomitant]
  27. ACCUPRIL [Concomitant]
  28. EFFEXOR [Concomitant]
     Dosage: 150 MG, TID
     Route: 048
  29. CARAFATE [Concomitant]
     Dosage: 1 G, TID
  30. NITROGLYCERIN [Concomitant]
     Dosage: UNK
     Route: 042
     Dates: start: 20070308
  31. TRASYLOL [Suspect]
     Indication: AORTIC VALVE REPAIR
     Dosage: 200 ML PRIME, 50 CC/HR INFUSION
     Route: 042
     Dates: start: 20070308, end: 20070309
  32. LASIX [Concomitant]
     Dosage: 40 MG, UNK
     Route: 042
     Dates: start: 20070308
  33. REGULAR INSULIN [Concomitant]
     Dosage: 10 U, UNK
     Route: 042
     Dates: start: 20070309
  34. ZINACEF [Concomitant]
     Dosage: 1 G, UNK
     Route: 042
     Dates: start: 20070308
  35. PROTAMINE SULFATE [Concomitant]
     Dosage: 350 MG, UNK
     Route: 042
     Dates: start: 20070308
  36. FRESH FROZEN PLASMA [Concomitant]
     Dosage: 8 U, UNK
     Dates: start: 20070308
  37. LASIX [Concomitant]
     Dosage: 40 MG, UNK
     Route: 042
     Dates: start: 20070309
  38. LISINOPRIL [Concomitant]
  39. ALDACTONE [Concomitant]
     Dosage: 25 MG, QD
     Route: 048
  40. ANCEF [Concomitant]
  41. ZETIA [Concomitant]
     Dosage: 10 MG, QD
     Route: 048

REACTIONS (13)
  - MULTI-ORGAN FAILURE [None]
  - INJURY [None]
  - UNEVALUABLE EVENT [None]
  - DEPRESSION [None]
  - FEAR [None]
  - PAIN [None]
  - MENTAL DISORDER [None]
  - ANXIETY [None]
  - RENAL FAILURE [None]
  - EMOTIONAL DISTRESS [None]
  - RENAL INJURY [None]
  - ANHEDONIA [None]
  - DISABILITY [None]
